FAERS Safety Report 6295019-2 (Version None)
Quarter: 2009Q3

REPORT INFORMATION
  Report Type: 
  Country: None (occurrence: None)
  Receive Date: 20090731
  Receipt Date: 20090731
  Transmission Date: 20100115
  Serious: No
  Sender: FDA-Public Use
  Company Number: None

PATIENT
  Sex: Female
  Weight: 74.8435 kg

DRUGS (1)
  1. PROZAC [Suspect]
     Indication: MIGRAINE PROPHYLAXIS
     Dosage: 20 MG DAILY PO
     Route: 048
     Dates: start: 20090707, end: 20090729

REACTIONS (3)
  - DISTURBANCE IN SEXUAL AROUSAL [None]
  - FEELING ABNORMAL [None]
  - ORGASM ABNORMAL [None]
